FAERS Safety Report 11414677 (Version 2)
Quarter: 2016Q1

REPORT INFORMATION
  Report Type: Report from Study
  Country: US (occurrence: US)
  Receive Date: 20150825
  Receipt Date: 20160204
  Transmission Date: 20160525
  Serious: No
  Sender: FDA-Public Use
  Company Number: US-AMGEN-USASP2015085448

PATIENT
  Age: 65 Year
  Sex: Female

DRUGS (1)
  1. ENBREL [Suspect]
     Active Substance: ETANERCEPT
     Indication: PSORIASIS
     Dosage: 50 MG, TWICE A WEEK
     Route: 065
     Dates: start: 20041115

REACTIONS (7)
  - Skin disorder [Unknown]
  - Drug dose omission [Unknown]
  - Pain [Unknown]
  - Incorrect product storage [Unknown]
  - Stress [Unknown]
  - Anxiety [Unknown]
  - Liver disorder [Unknown]

NARRATIVE: CASE EVENT DATE: 201508
